FAERS Safety Report 7941643-8 (Version None)
Quarter: 2011Q4

REPORT INFORMATION
  Report Type: 
  Country: None (occurrence: None)
  Receive Date: 20111128
  Receipt Date: 20111122
  Transmission Date: 20120403
  Serious: Yes (Hospitalization)
  Sender: FDA-Public Use
  Company Number: FR-SANOFI-AVENTIS-2011SA076589

PATIENT
  Age: 62 Year
  Sex: Male

DRUGS (17)
  1. PRAZEPAM [Suspect]
     Route: 048
     Dates: end: 20091223
  2. PRAVASTATIN [Concomitant]
     Route: 048
  3. MOVIPREP [Concomitant]
     Route: 048
  4. FUROSEMIDE [Suspect]
     Route: 048
     Dates: end: 20091223
  5. LORAZEPAM [Suspect]
     Route: 048
  6. ASPIRIN [Concomitant]
     Route: 048
  7. VFEND [Suspect]
     Route: 048
     Dates: start: 20091201
  8. VALSARTAN [Suspect]
     Route: 048
     Dates: end: 20091223
  9. TOCO [Concomitant]
     Route: 048
  10. IOMEPROL [Suspect]
     Route: 042
     Dates: start: 20091217, end: 20091217
  11. NEXIUM [Concomitant]
     Route: 048
  12. ATENOLOL [Concomitant]
     Route: 048
  13. FERROUS SULFATE TAB [Concomitant]
     Route: 048
  14. CLORAZEPATE DIPOTASSIUM [Suspect]
     Route: 048
     Dates: end: 20091223
  15. DURAGESIC-100 [Suspect]
     Route: 062
  16. ALLOPURINOL [Concomitant]
     Route: 048
  17. ESCITALOPRAM OXALATE [Concomitant]
     Route: 048

REACTIONS (2)
  - DISTURBANCE IN ATTENTION [None]
  - RENAL FAILURE ACUTE [None]
